FAERS Safety Report 8267945-6 (Version None)
Quarter: 2012Q2

REPORT INFORMATION
  Report Type: 
  Country: None (occurrence: None)
  Receive Date: 20120409
  Receipt Date: 20120404
  Transmission Date: 20120825
  Serious: Yes (Death)
  Sender: FDA-Public Use
  Company Number: PHEH2011US01418

PATIENT
  Sex: Female
  Weight: 65.7 kg

DRUGS (20)
  1. BUDESONIDE [Concomitant]
  2. LORAZEPAM [Concomitant]
  3. FLUCONAZOLE [Concomitant]
  4. PREDNISONE [Concomitant]
  5. PROZAC [Concomitant]
  6. HYDROMORPHONE HYDROCHLORIDE [Concomitant]
  7. TASIGNA [Suspect]
     Dosage: 400 MG, BID
     Route: 048
     Dates: start: 20110209
  8. PRILOSEC [Concomitant]
  9. MAGNESIUM [Concomitant]
  10. NEURONTIN [Concomitant]
  11. BECLOMETHASONE DIPROPIONATE [Concomitant]
  12. ALBUTEROL [Concomitant]
  13. DILTIAZEM HCL [Concomitant]
  14. ALPRAZOLAM [Concomitant]
  15. PROGRAF [Concomitant]
  16. SULPHAMETHOXAZOLE [Concomitant]
  17. ACYCLOVIR [Concomitant]
  18. TASIGNA [Suspect]
     Indication: ACUTE LYMPHOCYTIC LEUKAEMIA
     Dosage: 400 MG, BID
     Route: 048
     Dates: start: 20090822
  19. VALTREX [Concomitant]
  20. ACTIGALL [Concomitant]

REACTIONS (2)
  - DEATH [None]
  - HEPATIC ENZYME INCREASED [None]
